FAERS Safety Report 9979203 (Version 1)
Quarter: 2014Q1

REPORT INFORMATION
  Report Type: Report from Study
  Country: US (occurrence: US)
  Receive Date: 20140306
  Receipt Date: 20140306
  Transmission Date: 20141002
  Serious: No
  Sender: FDA-Public Use
  Company Number: US-ABBVIE-13P-163-1169409-00

PATIENT
  Age: 54 Year
  Sex: Female

DRUGS (17)
  1. HUMIRA [Suspect]
     Indication: CROHN^S DISEASE
     Dates: start: 20121114
  2. PANTOPRAZOLE [Concomitant]
     Indication: GASTROOESOPHAGEAL REFLUX DISEASE
     Dosage: AT BEDTIME
  3. FOLIC ACID [Concomitant]
     Indication: PRODUCT USED FOR UNKNOWN INDICATION
  4. ASPIRIN [Concomitant]
     Indication: PRODUCT USED FOR UNKNOWN INDICATION
  5. MULTIVITAMIN [Concomitant]
     Indication: PRODUCT USED FOR UNKNOWN INDICATION
  6. METOCLOPRAMIDE [Concomitant]
     Indication: GASTROOESOPHAGEAL REFLUX DISEASE
  7. DIOVAN [Concomitant]
     Indication: BLOOD PRESSURE
  8. HCTZ [Concomitant]
     Indication: BLOOD PRESSURE
  9. VITAMIN D3 [Concomitant]
     Indication: PRODUCT USED FOR UNKNOWN INDICATION
  10. ASACOL [Concomitant]
     Indication: CROHN^S DISEASE
  11. ASACOL [Concomitant]
  12. LEVOXYL [Concomitant]
     Indication: THYROID CANCER
     Dates: end: 20130715
  13. LEVOXYL [Concomitant]
     Dates: start: 20130715
  14. METFORMIN [Concomitant]
     Indication: DIABETES MELLITUS
     Dosage: ONE IN AM AND TWO IN PM
     Dates: end: 20130826
  15. METFORMIN [Concomitant]
     Dosage: 2 PILLS IN THE MORNING AND 2 PILLS IN THE AFTERNOON
     Dates: start: 20130826
  16. WELCHOL [Concomitant]
     Indication: CROHN^S DISEASE
     Dates: end: 20131007
  17. WELCHOL [Concomitant]
     Dates: start: 20131007

REACTIONS (5)
  - Oropharyngeal pain [Not Recovered/Not Resolved]
  - Abdominal pain upper [Not Recovered/Not Resolved]
  - Blood glucose increased [Recovered/Resolved]
  - Nasopharyngitis [Not Recovered/Not Resolved]
  - Cough [Not Recovered/Not Resolved]
